FAERS Safety Report 9917018 (Version 1)
Quarter: 2014Q1

REPORT INFORMATION
  Report Type: Spontaneous
  Country: US (occurrence: US)
  Receive Date: 20140221
  Receipt Date: 20140221
  Transmission Date: 20141002
  Serious: Yes (Hospitalization)
  Sender: FDA-Public Use
  Company Number: US-GLAXOSMITHKLINE-A1061002A

PATIENT
  Age: 14 Year
  Sex: Female

DRUGS (1)
  1. LAMICTAL [Suspect]
     Indication: BIPOLAR DISORDER
     Dosage: 25MG PER DAY
     Route: 048
     Dates: start: 20140201, end: 20140209

REACTIONS (12)
  - Suicidal ideation [Unknown]
  - Parvovirus infection [Unknown]
  - Nausea [Unknown]
  - Vomiting [Unknown]
  - Abdominal pain upper [Unknown]
  - Epistaxis [Unknown]
  - Condition aggravated [Unknown]
  - Jaundice [Unknown]
  - Hepatic enzyme abnormal [Unknown]
  - Rash generalised [Not Recovered/Not Resolved]
  - Exposure to toxic agent [Unknown]
  - Exposure via ingestion [Unknown]
